FAERS Safety Report 18932200 (Version 2)
Quarter: 2021Q1

REPORT INFORMATION
  Report Type: Other
  Country: PT (occurrence: PT)
  Receive Date: 20210224
  Receipt Date: 20210322
  Transmission Date: 20210420
  Serious: Yes (Disabling, Other)
  Sender: FDA-Public Use
  Company Number: PT-ROCHE-2769714

PATIENT
  Age: 59 Year
  Sex: Female

DRUGS (4)
  1. PERJETA [Suspect]
     Active Substance: PERTUZUMAB
     Indication: BREAST CANCER RECURRENT
  2. HERCEPTIN [Suspect]
     Active Substance: TRASTUZUMAB
     Indication: METASTASIS
     Route: 065
     Dates: start: 20200528, end: 20200923
  3. HERCEPTIN [Suspect]
     Active Substance: TRASTUZUMAB
     Indication: BREAST CANCER RECURRENT
  4. PERJETA [Suspect]
     Active Substance: PERTUZUMAB
     Indication: METASTASIS
     Route: 065
     Dates: start: 20200528, end: 20200923

REACTIONS (4)
  - Forced expiratory volume decreased [Recovering/Resolving]
  - Atrial fibrillation [Recovered/Resolved]
  - Palpitations [Recovered/Resolved]
  - Chest pain [Recovered/Resolved]

NARRATIVE: CASE EVENT DATE: 20200909
